FAERS Safety Report 21456373 (Version 1)
Quarter: 2022Q4

REPORT INFORMATION
  Report Type: Spontaneous
  Country: CA (occurrence: CA)
  Receive Date: 20221014
  Receipt Date: 20221014
  Transmission Date: 20230113
  Serious: Yes (Hospitalization, Other)
  Sender: FDA-Public Use
  Company Number: None

PATIENT
  Sex: Female

DRUGS (2)
  1. TRESIBA [Suspect]
     Active Substance: INSULIN DEGLUDEC
     Indication: Type 2 diabetes mellitus
     Dosage: 24 IU, QD
     Route: 058
  2. HUMALOG [Suspect]
     Active Substance: INSULIN LISPRO
     Indication: Type 2 diabetes mellitus
     Dosage: 3 EVERY 1 DAYS
     Route: 058

REACTIONS (4)
  - Diabetic coma [Recovering/Resolving]
  - Blood glucose increased [Recovering/Resolving]
  - Diabetes mellitus inadequate control [Recovering/Resolving]
  - Glycosylated haemoglobin increased [Recovering/Resolving]
